FAERS Safety Report 4264515-1 (Version None)
Quarter: 2004Q1

REPORT INFORMATION
  Report Type: 
  Country: None (occurrence: None)
  Receive Date: 20040102
  Receipt Date: 20031221
  Transmission Date: 20041129
  Serious: Yes (Other)
  Sender: FDA-Public Use
  Company Number: 2003126141

PATIENT
  Sex: Male
  Weight: 72.5755 kg

DRUGS (4)
  1. NEURONTIN [Suspect]
     Indication: ILL-DEFINED DISORDER
     Dosage: 3600 MG (TID), ORAL
     Route: 048
  2. DIAZEPAM [Concomitant]
  3. VENLAFAXINE HCL [Concomitant]
  4. FLUOXETINE HCL [Concomitant]

REACTIONS (4)
  - DIARRHOEA [None]
  - DRUG DEPENDENCE [None]
  - DRUG WITHDRAWAL SYNDROME [None]
  - MEDICATION ERROR [None]
